FAERS Safety Report 8674334 (Version 3)
Quarter: 2012Q4

REPORT INFORMATION
  Report Type: Report from Study
  Country: ES (occurrence: ES)
  Receive Date: 20120720
  Receipt Date: 20121228
  Transmission Date: 20130627
  Serious: Yes (Hospitalization, Other)
  Sender: FDA-Public Use
  Company Number: ES-BIOGENIDEC-2012BI024223

PATIENT
  Age: 52 Year
  Sex: Female

DRUGS (3)
  1. TYSABRI [Suspect]
     Indication: MULTIPLE SCLEROSIS
     Route: 042
     Dates: start: 20080515, end: 20120612
  2. EUTIROX [Concomitant]
     Dates: start: 20041221
  3. CALCIFEROL [Concomitant]
     Dates: start: 20120224

REACTIONS (1)
  - Breast cancer [Unknown]
